FAERS Safety Report 12666739 (Version 2)
Quarter: 2016Q3

REPORT INFORMATION
  Report Type: Report from Study
  Country: US (occurrence: US)
  Receive Date: 20160819
  Receipt Date: 20160907
  Transmission Date: 20161109
  Serious: No
  Sender: FDA-Public Use
  Company Number: US-AMGEN-USASL2016105258

PATIENT
  Age: 77 Year
  Sex: Female

DRUGS (2)
  1. ENBREL [Suspect]
     Active Substance: ETANERCEPT
     Indication: RHEUMATOID ARTHRITIS
     Dosage: 25 MG, TWICE A WEEK
     Route: 065
     Dates: start: 1998
  2. ENBREL [Suspect]
     Active Substance: ETANERCEPT
     Dosage: 25 MG, ONCE A WEEK
     Route: 065

REACTIONS (5)
  - Intentional product misuse [Unknown]
  - Musculoskeletal stiffness [Unknown]
  - Alopecia scarring [Recovering/Resolving]
  - Influenza [Unknown]
  - Hysterectomy [Unknown]

NARRATIVE: CASE EVENT DATE: 2013
